FAERS Safety Report 5074817-7 (Version None)
Quarter: 2006Q3

REPORT INFORMATION
  Report Type: 
  Country: None (occurrence: None)
  Receive Date: 20060804
  Receipt Date: 20060727
  Transmission Date: 20061208
  Serious: Yes (Other)
  Sender: FDA-Public Use
  Company Number: 200612200BCC

PATIENT
  Age: 55 Year
  Sex: Female
  Weight: 74.8435 kg

DRUGS (13)
  1. ASPIRIN [Suspect]
     Indication: ARTHRITIS
     Dosage: SEE IMAGE
     Route: 048
     Dates: start: 19810101, end: 20051001
  2. ASPIRIN [Suspect]
     Indication: FIBROMYALGIA
     Dosage: SEE IMAGE
     Route: 048
     Dates: start: 19810101, end: 20051001
  3. ASPIRIN [Suspect]
     Indication: ARTHRITIS
     Dosage: SEE IMAGE
     Route: 048
     Dates: start: 19810101
  4. ASPIRIN [Suspect]
     Indication: FIBROMYALGIA
     Dosage: SEE IMAGE
     Route: 048
     Dates: start: 19810101
  5. ASPIRIN [Suspect]
     Indication: PAIN
     Dosage: 81 MG, QD, ORAL
     Route: 048
     Dates: start: 20051201
  6. NEXAVAR [Suspect]
     Indication: METASTASES TO LUNG
     Dosage: 400 MG, BID, ORAL
     Route: 048
     Dates: start: 20060510, end: 20060515
  7. NEXAVAR [Suspect]
     Indication: RENAL CELL CARCINOMA STAGE UNSPECIFIED
     Dosage: 400 MG, BID, ORAL
     Route: 048
     Dates: start: 20060510, end: 20060515
  8. PAZOPANIB (UNCODEABLE ^INVESTIGATIONAL DRUG^) [Suspect]
  9. MAXZIDE [Concomitant]
  10. NORVASC [Concomitant]
  11. LASIX [Concomitant]
  12. NEXIUM [Concomitant]
  13. POTASSIUM CHLORIDE [Concomitant]

REACTIONS (15)
  - DEAFNESS [None]
  - GAIT DISTURBANCE [None]
  - HYPERTENSION [None]
  - HYPOAESTHESIA [None]
  - LIVER FUNCTION TEST ABNORMAL [None]
  - LOCALISED OEDEMA [None]
  - METASTASES TO LUNG [None]
  - MUSCLE SPASMS [None]
  - PALMAR-PLANTAR ERYTHRODYSAESTHESIA SYNDROME [None]
  - PARAESTHESIA [None]
  - RASH GENERALISED [None]
  - RENAL CELL CARCINOMA STAGE UNSPECIFIED [None]
  - RENAL FUNCTION TEST ABNORMAL [None]
  - TINNITUS [None]
  - WEIGHT INCREASED [None]
